FAERS Safety Report 7634497-0 (Version None)
Quarter: 2011Q3

REPORT INFORMATION
  Report Type: 
  Country: None (occurrence: None)
  Receive Date: 20110725
  Receipt Date: 20110719
  Transmission Date: 20111222
  Serious: Yes (Other)
  Sender: FDA-Public Use
  Company Number: US-BAYER-2011-061773

PATIENT
  Sex: Male

DRUGS (3)
  1. ANTIGOUT PREPARATIONS [Concomitant]
     Indication: GOUT
  2. ANTIHYPERTENSIVES [Concomitant]
  3. AVELOX [Suspect]
     Indication: INFECTION
     Dosage: UNK
     Route: 048
     Dates: start: 20110601, end: 20110601

REACTIONS (9)
  - EXTREMITY CONTRACTURE [None]
  - PAIN IN EXTREMITY [None]
  - CONTUSION [None]
  - DYSSTASIA [None]
  - OEDEMA PERIPHERAL [None]
  - TENDON DISORDER [None]
  - SCIATICA [None]
  - TENDON RUPTURE [None]
  - MUSCLE SPASMS [None]
